FAERS Safety Report 7503881-8 (Version None)
Quarter: 2011Q2

REPORT INFORMATION
  Report Type: 
  Country: None (occurrence: None)
  Receive Date: 20110525
  Receipt Date: 20110511
  Transmission Date: 20111010
  Serious: Yes (Other)
  Sender: FDA-Public Use
  Company Number: US-BAYER-201038865NA

PATIENT
  Sex: Female
  Weight: 118 kg

DRUGS (6)
  1. YAZ [Suspect]
     Indication: PRODUCT USED FOR UNKNOWN INDICATION
     Dosage: UNK UNK, QD
     Route: 048
     Dates: start: 20070101, end: 20090101
  2. YASMIN [Suspect]
     Indication: PRODUCT USED FOR UNKNOWN INDICATION
     Dosage: UNK UNK, QD
     Route: 048
     Dates: start: 20070101, end: 20090101
  3. NAPROXEN (ALEVE) [Concomitant]
     Indication: PRODUCT USED FOR UNKNOWN INDICATION
     Dosage: UNK
     Route: 048
     Dates: start: 20040101
  4. ROCALTROL [Concomitant]
     Indication: THYROIDECTOMY
     Dosage: UNK
     Route: 048
     Dates: start: 19980901
  5. LEVOTHYROXINE SODIUM [Concomitant]
     Indication: THYROIDECTOMY
     Dosage: UNK
     Route: 048
     Dates: start: 19980901
  6. CALCIUM CARBONATE [Concomitant]
     Indication: THYROIDECTOMY
     Dosage: UNK
     Route: 048
     Dates: start: 19980901

REACTIONS (1)
  - GALLBLADDER INJURY [None]
